FAERS Safety Report 4307158-3 (Version None)
Quarter: 2004Q1

REPORT INFORMATION
  Report Type: 
  Country: None (occurrence: None)
  Receive Date: 20040225
  Receipt Date: 20040213
  Transmission Date: 20041129
  Serious: Yes (Death)
  Sender: FDA-Public Use
  Company Number: DE-JNJFOC-20040203289

PATIENT
  Age: 35 Year
  Sex: Male

DRUGS (1)
  1. RISPERDAL [Suspect]
     Indication: PSYCHOTIC DISORDER

REACTIONS (4)
  - CLOSTRIDIUM COLITIS [None]
  - GALLBLADDER OPERATION [None]
  - MENINGITIS STAPHYLOCOCCAL [None]
  - POST PROCEDURAL COMPLICATION [None]
